FAERS Safety Report 10152818 (Version 2)
Quarter: 2014Q2

REPORT INFORMATION
  Report Type: Spontaneous
  Country: US (occurrence: US)
  Receive Date: 20140505
  Receipt Date: 20140505
  Transmission Date: 20141212
  Serious: Yes (Hospitalization)
  Sender: FDA-Public Use
  Company Number: US-UCBSA-112982

PATIENT
  Age: 35 Year
  Sex: Female

DRUGS (1)
  1. CIMZIA [Suspect]
     Indication: CROHN^S DISEASE
     Dosage: 200 MG/400 MG EVERY 2 WEEKS FOR A TOTAL OF 600 MG, EXPIRATION DATE: ??-APR-2016
     Dates: start: 20130912

REACTIONS (3)
  - Abdominal pain [Recovered/Resolved]
  - Hospitalisation [Not Recovered/Not Resolved]
  - Hepatic function abnormal [Not Recovered/Not Resolved]
